FAERS Safety Report 15852661 (Version 1)
Quarter: 2019Q1

REPORT INFORMATION
  Report Type: Report from Study
  Country: BS (occurrence: BS)
  Receive Date: 20190122
  Receipt Date: 20190122
  Transmission Date: 20190417
  Serious: Yes (Other)
  Sender: FDA-Public Use
  Company Number: PHHY2019BS011394

PATIENT
  Sex: Female

DRUGS (3)
  1. HYDREA [Concomitant]
     Active Substance: HYDROXYUREA
     Indication: PRODUCT USED FOR UNKNOWN INDICATION
     Route: 065
  2. TASIGNA [Suspect]
     Active Substance: NILOTINIB
     Dosage: 400 MG, BID (2 IN THE MORNING AND 2 IN THE AFTERNOON)
     Route: 065
  3. TASIGNA [Suspect]
     Active Substance: NILOTINIB
     Indication: CHRONIC MYELOID LEUKAEMIA
     Dosage: 6 DF (200 MG), QD
     Route: 065

REACTIONS (11)
  - Abdominal pain [Unknown]
  - Weight decreased [Unknown]
  - Neutrophil count increased [Unknown]
  - Vomiting [Unknown]
  - Eosinophil count decreased [Unknown]
  - Thrombocytosis [Unknown]
  - Red blood cell count decreased [Unknown]
  - Haematocrit decreased [Unknown]
  - Incorrect dose administered [Unknown]
  - White blood cell count increased [Unknown]
  - Haemoglobin increased [Unknown]
